FAERS Safety Report 4761644-0 (Version None)
Quarter: 2005Q3

REPORT INFORMATION
  Report Type: 
  Country: None (occurrence: None)
  Receive Date: 20050831
  Receipt Date: 20050628
  Transmission Date: 20060218
  Serious: No
  Sender: FDA-Public Use
  Company Number: PHEH2005US07288

PATIENT
  Age: 85 Year
  Sex: Female
  Weight: 68 kg

DRUGS (4)
  1. ENABLEX [Suspect]
     Dosage: 7.5 MG, QD, ORAL
     Route: 048
     Dates: start: 20050615, end: 20050628
  2. PREMARIN [Concomitant]
  3. NEXIUM [Concomitant]
  4. ASPIRIN [Concomitant]

REACTIONS (2)
  - DRY MOUTH [None]
  - SWOLLEN TONGUE [None]
